FAERS Safety Report 5688101-1 (Version None)
Quarter: 2008Q1

REPORT INFORMATION
  Report Type: 
  Country: None (occurrence: None)
  Receive Date: 20080327
  Receipt Date: 20080320
  Transmission Date: 20080703
  Serious: Yes (Other)
  Sender: FDA-Public Use
  Company Number: CHNY2008GB00832

PATIENT
  Age: 49 Year
  Sex: Male

DRUGS (2)
  1. NICOTINE [Suspect]
     Dosage: 20 DF, QD, CHEWED
     Dates: start: 20010101
  2. FLUOXETINE [Concomitant]

REACTIONS (3)
  - DRUG DEPENDENCE [None]
  - INCORRECT DRUG ADMINISTRATION DURATION [None]
  - WITHDRAWAL SYNDROME [None]
